FAERS Safety Report 19508252 (Version 1)
Quarter: 2021Q3

REPORT INFORMATION
  Report Type: Report from Study
  Country: CA (occurrence: CA)
  Receive Date: 20210708
  Receipt Date: 20210708
  Transmission Date: 20211014
  Serious: Yes (Other)
  Sender: FDA-Public Use
  Company Number: CA-TAKEDA-CA201902277

PATIENT
  Age: 62 Year
  Sex: Female

DRUGS (5)
  1. NALTREXONE [Concomitant]
     Active Substance: NALTREXONE
     Indication: PRODUCT USED FOR UNKNOWN INDICATION
     Dosage: UNK
     Route: 065
  2. HIZENTRA [Concomitant]
     Active Substance: HUMAN IMMUNOGLOBULIN G
     Indication: PRODUCT USED FOR UNKNOWN INDICATION
     Dosage: 25 GRAM, 1/WEEK
     Route: 065
     Dates: start: 20110101
  3. CUVITRU [Suspect]
     Active Substance: HUMAN IMMUNOGLOBULIN G
     Dosage: 5 MILLIGRAM, 1X/WEEK
     Route: 065
     Dates: start: 20180813
  4. CUVITRU [Suspect]
     Active Substance: HUMAN IMMUNOGLOBULIN G
     Indication: PRIMARY IMMUNODEFICIENCY SYNDROME
     Dosage: 5 GRAM, 1X/WEEK
     Route: 058
     Dates: start: 20180812
  5. METHOTREXATE. [Concomitant]
     Active Substance: METHOTREXATE
     Indication: PRODUCT USED FOR UNKNOWN INDICATION
     Dosage: UNK
     Route: 065

REACTIONS (6)
  - Tooth disorder [Not Recovered/Not Resolved]
  - Infusion site swelling [Unknown]
  - Hypersomnia [Not Recovered/Not Resolved]
  - Product quality issue [Unknown]
  - Neutropenia [Not Recovered/Not Resolved]
  - Device issue [Unknown]
